FAERS Safety Report 9896201 (Version 2)
Quarter: 2016Q1

REPORT INFORMATION
  Report Type: Spontaneous
  Country: US (occurrence: US)
  Receive Date: 20140213
  Receipt Date: 20160120
  Transmission Date: 20160526
  Serious: No
  Sender: FDA-Public Use
  Company Number: US-BRISTOL-MYERS SQUIBB COMPANY-17328253

PATIENT
  Sex: Female

DRUGS (2)
  1. ORENCIA [Suspect]
     Active Substance: ABATACEPT
     Indication: RHEUMATOID ARTHRITIS
     Dosage: 1000 MG, UNK
     Route: 042
     Dates: start: 200906, end: 201210
  2. ABATACEPT [Suspect]
     Active Substance: ABATACEPT
     Indication: RHEUMATOID ARTHRITIS
     Dosage: 150 MG, UNK
     Route: 058

REACTIONS (3)
  - Infection [Unknown]
  - Maternal exposure during pregnancy [Unknown]
  - Malaise [Unknown]

NARRATIVE: CASE EVENT DATE: 2012
